FAERS Safety Report 5135705-0 (Version None)
Quarter: 2006Q4

REPORT INFORMATION
  Report Type: 
  Country: None (occurrence: None)
  Receive Date: 20061024
  Receipt Date: 20061024
  Transmission Date: 20070319
  Serious: Yes (Hospitalization)
  Sender: FDA-Public Use
  Company Number: None

PATIENT
  Age: 64 Year
  Sex: Male
  Weight: 127.0072 kg

DRUGS (10)
  1. ADENOSCAN [Suspect]
     Indication: SCAN MYOCARDIAL PERFUSION
     Dosage: 18 MG  INFUSION   INJ
     Dates: start: 20060824
  2. AGGRENOX [Concomitant]
  3. CLONAZEPAM [Concomitant]
  4. CYCLOBENZAPRINE HCL [Concomitant]
  5. GABAPENTIN [Concomitant]
  6. ASPART INSULIN [Concomitant]
  7. OMEPRAZOLE [Concomitant]
  8. CROMOLYN OPTH SOLN [Concomitant]
  9. QUININE SULFATE [Concomitant]
  10. SEVELAMER [Concomitant]

REACTIONS (2)
  - CARDIAC ARREST [None]
  - LOSS OF CONSCIOUSNESS [None]
